FAERS Safety Report 7595645-4 (Version None)
Quarter: 2011Q3

REPORT INFORMATION
  Report Type: 
  Country: None (occurrence: None)
  Receive Date: 20110707
  Receipt Date: 20110621
  Transmission Date: 20111222
  Serious: Yes (Hospitalization, Other)
  Sender: FDA-Public Use
  Company Number: PHHY2011ES55407

PATIENT
  Age: 66 Year
  Sex: Female

DRUGS (5)
  1. QUETIAPINE [Interacting]
     Dosage: 800 MG, DAILY
  2. VALPROIC ACID [Interacting]
     Dosage: 1500 MG/DAY
  3. VALPROIC ACID [Suspect]
     Indication: BIPOLAR DISORDER
     Dosage: 1 G, DAILY
  4. QUETIAPINE [Interacting]
     Indication: PSYCHOTIC DISORDER
     Dosage: 300 MG, DAILY
  5. CLOPIDOGREL [Concomitant]

REACTIONS (16)
  - PSYCHOMOTOR HYPERACTIVITY [None]
  - IRRITABILITY [None]
  - INCONTINENCE [None]
  - BRADYKINESIA [None]
  - BRADYPHRENIA [None]
  - MEMORY IMPAIRMENT [None]
  - MUSCLE RIGIDITY [None]
  - DRUG INTERACTION [None]
  - PARKINSONISM [None]
  - INSOMNIA [None]
  - BEDRIDDEN [None]
  - SOMNOLENCE [None]
  - DISORIENTATION [None]
  - ELEVATED MOOD [None]
  - PSYCHOTIC DISORDER [None]
  - TREMOR [None]
